FAERS Safety Report 5591257-2 (Version None)
Quarter: 2008Q1

REPORT INFORMATION
  Report Type: 
  Country: None (occurrence: None)
  Receive Date: 20080111
  Receipt Date: 20080103
  Transmission Date: 20080703
  Serious: Yes (Death)
  Sender: FDA-Public Use
  Company Number: 2008-00010

PATIENT
  Age: 65 Year
  Sex: Male
  Weight: 108.5 kg

DRUGS (49)
  1. VELCADE [Suspect]
     Indication: CHRONIC LYMPHOCYTIC LEUKAEMIA
     Dosage: 3.00 MG, INTRAVENOUS
     Route: 042
     Dates: start: 20071206, end: 20071221
  2. RITUXAN [Suspect]
     Indication: CHRONIC LYMPHOCYTIC LEUKAEMIA
     Dosage: 870 MG, INTRAVENOUS; 2310.00 MG, INTRAVENOUS
     Route: 042
     Dates: start: 20071206, end: 20071206
  3. RITUXAN [Suspect]
     Indication: CHRONIC LYMPHOCYTIC LEUKAEMIA
     Dosage: 870 MG, INTRAVENOUS; 2310.00 MG, INTRAVENOUS
     Route: 042
     Dates: start: 20071213
  4. MELPHALAN(MELPHALAN) VIAL [Suspect]
     Indication: CHRONIC LYMPHOCYTIC LEUKAEMIA
     Dosage: 226.00 MG, INTRAVENOUS
     Route: 042
     Dates: start: 20071218
  5. ETOPOSIDE [Suspect]
     Indication: CHRONIC LYMPHOCYTIC LEUKAEMIA
     Dosage: 211.00 MG, INTRAVENOUS
     Route: 042
     Dates: start: 20071214
  6. CYTARABINE [Suspect]
     Indication: CHRONIC LYMPHOCYTIC LEUKAEMIA
     Dosage: 211 MG, INTRAVENOUS
     Route: 042
     Dates: start: 20071214
  7. CARMUSTINE [Suspect]
     Indication: CHRONIC LYMPHOCYTIC LEUKAEMIA
     Dosage: 633 MG, INTRAVENOUS
     Route: 042
     Dates: start: 20071213
  8. NOREPINEPHRINE BITARTRATE [Concomitant]
  9. MEPERIDINE HCL [Concomitant]
  10. POTASSIUM PHOSPHATE DIBASIC (POTASSIUM PHOSPHATE DIBASIC) [Concomitant]
  11. POTASSIUM CHLORIDE [Concomitant]
  12. MAGNESIUM SULFATE [Concomitant]
  13. SUCCINYLCHOLINE CHLORIDE [Concomitant]
  14. MIDAZOLAM HCL [Concomitant]
  15. FENTANYL CITRATE [Concomitant]
  16. ALBUTEROL [Concomitant]
  17. ETOMIDATE [Concomitant]
  18. PHENYLEPHRINE (PHENYLEPHRINE) [Concomitant]
  19. TACROLIMUS [Concomitant]
  20. HYDROMORPHONE HCL [Concomitant]
  21. PHYTONADIONE [Concomitant]
  22. URSODIOL (URSODEOXYCHOLIC ACID) [Concomitant]
  23. HYDROCORTISONE (HYDROCORTISONE) [Concomitant]
  24. METRONIDAZOLE [Concomitant]
  25. POSACONAZOLE [Concomitant]
  26. DIPHENHYDRAMINE HCL [Concomitant]
  27. ACYCLOVIR [Concomitant]
  28. METHYLPREDNISOLONE [Concomitant]
  29. CALCIUM GLUCONATE [Concomitant]
  30. CALCIUM CARBONATE (CALCIUM CARBONATE) [Concomitant]
  31. METOPROLOL TARTRATE [Concomitant]
  32. NALOXONE [Concomitant]
  33. ONDANSETRON HCL [Concomitant]
  34. ALUMINIUM W/MAGNESIUM HYDROXIDE/SIMETICONE/ (MAGNESIUM HYDROXIDE, SIME [Concomitant]
  35. LOPERAMIDE [Concomitant]
  36. FILGRASTIM [Concomitant]
  37. ESOMEPRAZOLE SODIUM [Concomitant]
  38. ESOMEPRAZOLE MAGNESIUM [Concomitant]
  39. LEUCOVORIN CALCIUM [Concomitant]
  40. FUROSEMIDE [Concomitant]
  41. VALACYCLOVIR [Concomitant]
  42. DEXAMETHASONE SODIUM PHOSPHATE [Concomitant]
  43. ALLOPURINOL [Concomitant]
  44. LORAZEPAM [Concomitant]
  45. AMLODIPINE [Concomitant]
  46. LEVABUTEROL HYDROCHLORIDE [Concomitant]
  47. VALACICLOVIR HYDROCHLORIDE (VALACICLOVIR HYDROCHLORIDE) [Concomitant]
  48. DIPHENOXYLATE W/ATROPINE SULFATE (ATROPINE SULFATE, DIPHENOXYLATE) [Concomitant]
  49. VALGACICLOVIR HYDROCHLORIDE (VALGANCICLOVIR HYDROCHLORIDE) [Concomitant]

REACTIONS (12)
  - BACTERIAL TOXAEMIA [None]
  - BLOOD PRESSURE DECREASED [None]
  - CLOSTRIDIUM DIFFICILE COLITIS [None]
  - CONTRAST MEDIA REACTION [None]
  - GENERAL PHYSICAL HEALTH DETERIORATION [None]
  - HAEMODIALYSIS [None]
  - HYPOXIA [None]
  - MUCOSAL INFLAMMATION [None]
  - NEPHROPATHY [None]
  - NO THERAPEUTIC RESPONSE [None]
  - RENAL FAILURE [None]
  - SEPSIS [None]
